FAERS Safety Report 7483827-1 (Version None)
Quarter: 2011Q2

REPORT INFORMATION
  Report Type: 
  Country: None (occurrence: None)
  Receive Date: 20110517
  Receipt Date: 20110120
  Transmission Date: 20111010
  Serious: Yes (Hospitalization, Other)
  Sender: FDA-Public Use
  Company Number: US-BAYER-201039838NA

PATIENT
  Age: 22 Year
  Sex: Female
  Weight: 113.38 kg

DRUGS (17)
  1. LEXAPRO [Concomitant]
     Dosage: 10 MG, QD
  2. ACIPHEX [Concomitant]
     Indication: GASTRITIS
  3. DOXYCYCLINE [Concomitant]
     Dosage: 50 MG, QD
  4. FLAXSEED OIL [Concomitant]
  5. COZAAR [Concomitant]
     Dosage: UNK
     Dates: start: 20010101, end: 20050101
  6. PROTONIX [Concomitant]
     Indication: GASTROOESOPHAGEAL REFLUX DISEASE
     Dosage: UNK
     Dates: start: 19940101
  7. DIOVAN [Concomitant]
     Dosage: UNK
     Dates: start: 20050101, end: 20100101
  8. ZOLOFT [Concomitant]
     Indication: DEPRESSION
     Dosage: UNK
     Dates: start: 19990101
  9. YASMIN [Suspect]
     Indication: ACNE
     Dosage: UNK
     Dates: start: 20020801, end: 20090601
  10. ACIPHEX [Concomitant]
     Dosage: 20 MG, QD
  11. PREVACID [Concomitant]
     Dosage: UNK
     Dates: start: 19940101
  12. PAXIL [Concomitant]
     Indication: DEPRESSION
     Dosage: UNK
     Dates: start: 19990101
  13. ACIPHEX [Concomitant]
     Indication: GASTROOESOPHAGEAL REFLUX DISEASE
     Dosage: UNK
     Dates: start: 19940101
  14. LEXAPRO [Concomitant]
     Indication: DEPRESSION
     Dosage: UNK
     Dates: start: 19990101
  15. ACIDOPHILUS [Concomitant]
  16. PROTONIX [Concomitant]
     Indication: GASTRITIS
  17. LEXAPRO [Concomitant]
     Indication: ANXIETY

REACTIONS (4)
  - GALLBLADDER DISORDER [None]
  - CHOLECYSTITIS CHRONIC [None]
  - INJURY [None]
  - CHOLELITHIASIS [None]
